FAERS Safety Report 10367217 (Version 1)
Quarter: 2014Q3

REPORT INFORMATION
  Report Type: Spontaneous
  Country: CA (occurrence: CA)
  Receive Date: 20140807
  Receipt Date: 20140807
  Transmission Date: 20150326
  Serious: Yes (Other)
  Sender: FDA-Public Use
  Company Number: CA-ASTRAZENECA-2014SE55846

PATIENT
  Age: 60 Year
  Sex: Male

DRUGS (5)
  1. BRILINTA [Suspect]
     Active Substance: TICAGRELOR
     Route: 048
     Dates: start: 201311
  2. ASPIRIN. [Concomitant]
     Active Substance: ASPIRIN
     Dates: start: 201311
  3. BISOPROLOL [Concomitant]
     Active Substance: BISOPROLOL
     Route: 048
     Dates: start: 201311
  4. ROSUVASTATIN (NON-AZ PRODUCT) [Suspect]
     Active Substance: ROSUVASTATIN
     Dosage: TEVA 10 MG DAILY
     Route: 048
     Dates: start: 201311
  5. COVERSYL [Concomitant]
     Active Substance: PERINDOPRIL
     Dates: start: 201311

REACTIONS (1)
  - Contusion [Not Recovered/Not Resolved]
